FAERS Safety Report 8149250 (Version 2)
Quarter: 2013Q2

REPORT INFORMATION
  Report Type: Spontaneous
  Country: US (occurrence: US)
  Receive Date: 20110922
  Receipt Date: 20130410
  Transmission Date: 20140414
  Serious: Yes (Other)
  Sender: FDA-Public Use
  Company Number: US-ASTRAZENECA-2010SE16223

PATIENT
  Age: 56 Year
  Sex: Female

DRUGS (8)
  1. SEROQUEL [Suspect]
     Route: 048
     Dates: start: 20060804
  2. SEROQUEL [Suspect]
     Dosage: TAKE ONE TABLET PO QHS X 1DAY THEN 1 AND 1/2 TABLET PO QHS
     Route: 048
     Dates: start: 20070719
  3. SEROQUEL [Suspect]
     Route: 048
     Dates: start: 20070920
  4. EFFEXOR XR [Concomitant]
     Dosage: 75-150 MG
     Route: 048
     Dates: start: 20060804
  5. TRAZODONE [Concomitant]
     Indication: INSOMNIA
     Dosage: 1 -2 TABLETS PER ORAL AT NIGHT
     Route: 048
     Dates: start: 20070409
  6. LAMICTAL [Concomitant]
     Dosage: 25-100 MG DAILY
     Route: 048
     Dates: start: 20070719
  7. GEODON [Concomitant]
     Dosage: 1 TABLET PO QHS X WK THEN 2 TABLETS PO QHS
     Route: 048
     Dates: start: 20070524
  8. ADDERALL XR [Concomitant]
     Dates: start: 20070423

REACTIONS (3)
  - Pancreatitis [Unknown]
  - Diabetic coma [Unknown]
  - Type 2 diabetes mellitus [Unknown]
